FAERS Safety Report 8494680-1 (Version None)
Quarter: 2012Q3

REPORT INFORMATION
  Report Type: 
  Country: None (occurrence: None)
  Receive Date: 20120709
  Receipt Date: 20110511
  Transmission Date: 20120928
  Serious: Yes (Other)
  Sender: FDA-Public Use
  Company Number: US-BAYER-201022338NA

PATIENT
  Age: 23 Year
  Sex: Female
  Weight: 85 kg

DRUGS (8)
  1. YAZ [Suspect]
     Indication: ACNE
     Dosage: UNK
     Route: 048
     Dates: start: 20070801, end: 20100501
  2. XYZAL [Concomitant]
  3. CLARITHROMYCIN [Concomitant]
  4. FLUCONAZOLE [Concomitant]
  5. FISH OIL [Concomitant]
  6. ACETAMINOPHEN [Concomitant]
  7. VALTREX [Concomitant]
  8. YAZ [Suspect]
     Indication: PREMENSTRUAL SYNDROME

REACTIONS (10)
  - FAT INTOLERANCE [None]
  - CHOLECYSTITIS CHRONIC [None]
  - ABDOMINAL PAIN UPPER [None]
  - VOMITING [None]
  - EPIGASTRIC DISCOMFORT [None]
  - CHEST PAIN [None]
  - CHOLELITHIASIS [None]
  - EMOTIONAL DISORDER [None]
  - ABDOMINAL TENDERNESS [None]
  - NAUSEA [None]
